FAERS Safety Report 4646678-9 (Version None)
Quarter: 2005Q2

REPORT INFORMATION
  Report Type: 
  Country: None (occurrence: None)
  Receive Date: 20050425
  Receipt Date: 20050413
  Transmission Date: 20051028
  Serious: Yes (Death, Hospitalization)
  Sender: FDA-Public Use
  Company Number: 04P-144-0264461-0

PATIENT
  Sex: Female
  Weight: 70 kg

DRUGS (14)
  1. HUMIRA [Suspect]
     Indication: RHEUMATOID ARTHRITIS
     Dosage: 40 MG, SUBCUTANEOUS
     Route: 058
  2. FAWEYE [Concomitant]
  3. ACENOCOUMAROL [Concomitant]
  4. OMEPRAZOLE [Concomitant]
  5. TETRAZEPAM [Concomitant]
  6. METHOTREXATE [Concomitant]
  7. PANTOPRAZOLE SODIUM [Concomitant]
  8. HYDROCHLOROTHIAZIDE [Concomitant]
  9. DOMPERIDONE [Concomitant]
  10. AURANOFIN [Concomitant]
  11. CLARITHROMYCIN [Concomitant]
  12. CLOPERASTINE [Concomitant]
  13. FOLIC ACID [Concomitant]
  14. CYANOCOBALAMIN-TANNIN COMPLEX [Concomitant]

REACTIONS (8)
  - ANAEMIA [None]
  - CARDIO-RESPIRATORY ARREST [None]
  - CONSTIPATION [None]
  - FALL [None]
  - FEMUR FRACTURE [None]
  - FRACTURE [None]
  - HYPOTENSION [None]
  - MEDICAL DEVICE COMPLICATION [None]
